FAERS Safety Report 9207181 (Version 3)
Quarter: 2013Q3

REPORT INFORMATION
  Report Type: Spontaneous
  Country: US (occurrence: US)
  Receive Date: 20130403
  Receipt Date: 20130911
  Transmission Date: 20140515
  Serious: Yes (Hospitalization)
  Sender: FDA-Public Use
  Company Number: US-BAYER-2013-039866

PATIENT
  Age: 36 Year
  Sex: Female
  Weight: 61.22 kg

DRUGS (7)
  1. OCELLA [Suspect]
     Dosage: UNK
     Dates: start: 20090121, end: 20100211
  2. YAZ [Suspect]
  3. DURAHIST [Concomitant]
  4. HYDROCORTISONE [Concomitant]
     Indication: DERMATITIS
     Dosage: 2.5 %, UNK
  5. FLONASE [Concomitant]
  6. ATENOLOL [Concomitant]
     Indication: ANXIETY
     Dosage: 25 MG, UNK
  7. CORTICOSTEROIDS [Concomitant]

REACTIONS (7)
  - Deep vein thrombosis [None]
  - Pain [None]
  - Pain [None]
  - Injury [None]
  - Thrombophlebitis superficial [Recovering/Resolving]
  - Deep vein thrombosis [Recovering/Resolving]
  - Thrombophlebitis superficial [Recovering/Resolving]
